FAERS Safety Report 4301935-0 (Version None)
Quarter: 2004Q1

REPORT INFORMATION
  Report Type: 
  Country: None (occurrence: None)
  Receive Date: 20040220
  Receipt Date: 20040209
  Transmission Date: 20041129
  Serious: Yes (Hospitalization)
  Sender: FDA-Public Use
  Company Number: CA-JNJFOC-20040202368

PATIENT
  Age: 29 Year
  Sex: Female

DRUGS (8)
  1. REMICADE [Suspect]
     Indication: RHEUMATOID ARTHRITIS
     Dosage: 300 MG, INTRAVENOUS
     Route: 042
     Dates: start: 20030101
  2. REMICADE [Suspect]
     Indication: RHEUMATOID ARTHRITIS
     Dosage: 300 MG, INTRAVENOUS
     Route: 042
     Dates: start: 20040209
  3. METHOTREXATE [Concomitant]
  4. PENTASA [Concomitant]
  5. CALCIUM/VITAMIN D (CALCIUM WITH VITAMIN D) [Concomitant]
  6. SALOTALK (ALL OTHER THERAPEUTIC PRODUCTS) [Concomitant]
  7. FOLIC ACID [Concomitant]
  8. HAMILON (HORMONAL CONTRACEPTIVES FOR SYSTEMIC USE) [Concomitant]

REACTIONS (1)
  - APPENDIX DISORDER [None]
